FAERS Safety Report 8191277-8 (Version None)
Quarter: 2012Q1

REPORT INFORMATION
  Report Type: 
  Country: None (occurrence: None)
  Receive Date: 20120221
  Receipt Date: 20111111
  Transmission Date: 20120608
  Serious: No
  Sender: FDA-Public Use
  Company Number: 046315

PATIENT

DRUGS (1)
  1. LACOSAMIDE [Suspect]
     Indication: STATUS EPILEPTICUS
     Dosage: (12 HOURLY INTERVAL IN SEQUENTIAL DOSESE OF 50-100-150-200-MG ORAL)
     Route: 048

REACTIONS (1)
  - SOMNOLENCE [None]
